FAERS Safety Report 10394468 (Version 1)
Quarter: 2014Q3

REPORT INFORMATION
  Report Type: Spontaneous
  Country: JP (occurrence: JP)
  Receive Date: 20140819
  Receipt Date: 20140819
  Transmission Date: 20150326
  Serious: Yes (Death, Other)
  Sender: FDA-Public Use
  Company Number: PHHY2014JP099647

PATIENT
  Age: 84 Year
  Sex: Male

DRUGS (7)
  1. SARPOGRELATE [Suspect]
     Active Substance: SARPOGRELATE
     Indication: ANTIPLATELET THERAPY
     Dosage: 200 MG, UNK
  2. SARPOGRELATE [Suspect]
     Active Substance: SARPOGRELATE
     Indication: ARTERIAL RESTENOSIS
  3. CLOPIDOGREL [Suspect]
     Active Substance: CLOPIDOGREL BISULFATE
     Indication: ARTERIAL RESTENOSIS
  4. CLOPIDOGREL [Suspect]
     Active Substance: CLOPIDOGREL BISULFATE
     Indication: ANTIPLATELET THERAPY
     Dosage: 25 MG, UNK
  5. CILOSTAZOL. [Suspect]
     Active Substance: CILOSTAZOL
     Indication: ANTIPLATELET THERAPY
     Dosage: 40 MG, UNK
  6. CILOSTAZOL. [Suspect]
     Active Substance: CILOSTAZOL
     Indication: ARTERIAL RESTENOSIS
  7. COUMADINE [Suspect]
     Active Substance: WARFARIN SODIUM
     Indication: ATRIAL FIBRILLATION
     Dosage: 1 MG, UNK

REACTIONS (13)
  - Enterocolitis [Fatal]
  - Peripheral coldness [Unknown]
  - Pulmonary haematoma [Unknown]
  - Sepsis [Fatal]
  - Chest discomfort [Unknown]
  - Mediastinal disorder [Unknown]
  - Cardiac tamponade [Unknown]
  - Pericardial haemorrhage [Unknown]
  - Hyperhidrosis [Unknown]
  - Pericardial effusion [Unknown]
  - Fibrin D dimer increased [Unknown]
  - Prothrombin time prolonged [Unknown]
  - Haemodynamic instability [Unknown]
